FAERS Safety Report 11301556 (Version 1)
Quarter: 2015Q3

REPORT INFORMATION
  Report Type: Spontaneous
  Country: US (occurrence: US)
  Receive Date: 20150722
  Receipt Date: 20150722
  Transmission Date: 20151125
  Serious: No
  Sender: FDA-Public Use
  Company Number: US-ELI_LILLY_AND_COMPANY-US201001006027

PATIENT
  Age: 47 Year
  Sex: Female

DRUGS (15)
  1. LEXAPRO [Concomitant]
     Active Substance: ESCITALOPRAM OXALATE
  2. CORTEF [Concomitant]
     Active Substance: HYDROCORTISONE
  3. MULTIVITAMIN [Concomitant]
     Active Substance: VITAMINS
  4. KLONOPIN [Concomitant]
     Active Substance: CLONAZEPAM
  5. HUMATROPE [Suspect]
     Active Substance: SOMATROPIN
     Indication: HYPOPITUITARISM
     Dosage: 0.25 UG, DAILY (1/D)
     Route: 058
     Dates: start: 200606
  6. INVEGA [Concomitant]
     Active Substance: PALIPERIDONE
  7. DDAVP [Concomitant]
     Active Substance: DESMOPRESSIN ACETATE
  8. METFORMIN [Concomitant]
     Active Substance: METFORMIN HYDROCHLORIDE
  9. ASA [Concomitant]
     Active Substance: ASPIRIN
  10. TOPAMAX [Concomitant]
     Active Substance: TOPIRAMATE
  11. SEROQUEL [Concomitant]
     Active Substance: QUETIAPINE FUMARATE
  12. VITAMIN B12 [Concomitant]
     Active Substance: CYANOCOBALAMIN
  13. SYNTHROID [Concomitant]
     Active Substance: LEVOTHYROXINE SODIUM
  14. VITAMIN D [Concomitant]
     Active Substance: CHOLECALCIFEROL
  15. DOSTINEX [Concomitant]
     Active Substance: CABERGOLINE

REACTIONS (1)
  - Incorrect dose administered [Recovered/Resolved]

NARRATIVE: CASE EVENT DATE: 201001
